FAERS Safety Report 5934952-5 (Version None)
Quarter: 2008Q4

REPORT INFORMATION
  Report Type: 
  Country: None (occurrence: None)
  Receive Date: 20081028
  Receipt Date: 20071017
  Transmission Date: 20090506
  Serious: Yes (Other)
  Sender: FDA-Public Use
  Company Number: 1-15419966

PATIENT
  Age: 59 Year
  Sex: Female

DRUGS (5)
  1. METHYLPREDNISOLONE [Suspect]
     Dosage: TAPERED, DAILY, ORAL
     Route: 048
     Dates: start: 20070905, end: 20070908
  2. SINGULAIR [Concomitant]
  3. ACIPHEX (RABEPRAZOEL SODIUM) [Concomitant]
  4. ZETIA [Concomitant]
  5. NASONEX (MOMETASONE FUROATE MONOHYDRATE) [Concomitant]

REACTIONS (1)
  - STEVENS-JOHNSON SYNDROME [None]
